FAERS Safety Report 20571324 (Version 1)
Quarter: 2022Q1

REPORT INFORMATION
  Report Type: Spontaneous
  Country: CN (occurrence: None)
  Receive Date: 20220309
  Receipt Date: 20220309
  Transmission Date: 20220423
  Serious: Yes (Other)
  Sender: FDA-Public Use
  Company Number: CN-ROCHE-3038288

PATIENT
  Age: 62 Year
  Sex: Female

DRUGS (12)
  1. BEVACIZUMAB [Suspect]
     Active Substance: BEVACIZUMAB
     Indication: Rectal adenocarcinoma
     Dosage: BEVACIZUMAB+XELOX
     Route: 065
     Dates: start: 20210108
  2. BEVACIZUMAB [Suspect]
     Active Substance: BEVACIZUMAB
     Dosage: BEVACIZUMAB+XELOX
     Route: 065
     Dates: start: 20210702, end: 20210808
  3. OXALIPLATIN [Concomitant]
     Active Substance: OXALIPLATIN
     Indication: Rectal adenocarcinoma
     Dosage: XELOX
     Dates: start: 20200826, end: 20201218
  4. OXALIPLATIN [Concomitant]
     Active Substance: OXALIPLATIN
     Dosage: BEVACIZUMAB+XELOX
     Dates: start: 20210108
  5. OXALIPLATIN [Concomitant]
     Active Substance: OXALIPLATIN
     Dosage: BEVACIZUMAB+XELOX
     Dates: start: 20210702, end: 20210808
  6. CAPECITABINE [Concomitant]
     Active Substance: CAPECITABINE
     Indication: Rectal adenocarcinoma
     Dosage: XELOX (NO ROCHE PRODUCT)
     Route: 048
     Dates: start: 20200826, end: 20201218
  7. CAPECITABINE [Concomitant]
     Active Substance: CAPECITABINE
     Dosage: BEVACIZUMAB+XELOX (NO ROCHE PRODUCT)
     Dates: start: 20210108
  8. CAPECITABINE [Concomitant]
     Active Substance: CAPECITABINE
     Dosage: 2 TABLETS IN THE MORNING AND 2 TABLETS IN THE EVENING
     Dates: start: 20210120
  9. CAPECITABINE [Concomitant]
     Active Substance: CAPECITABINE
     Dosage: BEVACIZUMAB+XELOX (NO ROCHE PRODUCT)
     Dates: start: 20210702, end: 20210808
  10. IRINOTECAN [Concomitant]
     Active Substance: IRINOTECAN
     Indication: Rectal adenocarcinoma
     Dates: start: 20211108
  11. LEUCOVORIN CALCIUM [Concomitant]
     Active Substance: LEUCOVORIN CALCIUM
     Indication: Rectal adenocarcinoma
     Dates: start: 20211108
  12. FLUOROURACIL [Concomitant]
     Active Substance: FLUOROURACIL
     Indication: Rectal adenocarcinoma
     Dates: start: 20211108

REACTIONS (3)
  - Myelosuppression [Recovering/Resolving]
  - Peripheral swelling [Unknown]
  - Swelling [Unknown]
